FAERS Safety Report 14248235 (Version 1)
Quarter: 2017Q4

REPORT INFORMATION
  Report Type: Spontaneous
  Country: US (occurrence: US)
  Receive Date: 20171204
  Receipt Date: 20171204
  Transmission Date: 20180321
  Serious: Yes (Other)
  Sender: FDA-Public Use
  Company Number: US-BAYER-2017-231545

PATIENT
  Age: 34 Year
  Sex: Female

DRUGS (1)
  1. BAYER ASPIRIN [Suspect]
     Active Substance: ASPIRIN
     Indication: PAIN
     Dosage: UNK
     Route: 048
     Dates: start: 20171127, end: 20171127

REACTIONS (3)
  - Suicidal behaviour [Unknown]
  - Intentional self-injury [Not Recovered/Not Resolved]
  - Intentional product misuse [Not Recovered/Not Resolved]

NARRATIVE: CASE EVENT DATE: 20171127
